FAERS Safety Report 7655720-2 (Version None)
Quarter: 2011Q3

REPORT INFORMATION
  Report Type: 
  Country: None (occurrence: None)
  Receive Date: 20110801
  Receipt Date: 20110715
  Transmission Date: 20111222
  Serious: Yes (Hospitalization, Other)
  Sender: FDA-Public Use
  Company Number: 2011MA008944

PATIENT
  Age: 61 Year
  Sex: Female

DRUGS (1)
  1. VENLAFAXINE HYDROCHLORIDE [Suspect]
     Indication: MAJOR DEPRESSION
     Dosage: 300 MG;QD

REACTIONS (7)
  - WEIGHT INCREASED [None]
  - DYSARTHRIA [None]
  - DYSPHAGIA [None]
  - PROTRUSION TONGUE [None]
  - TREATMENT FAILURE [None]
  - TARDIVE DYSKINESIA [None]
  - SOCIAL AVOIDANT BEHAVIOUR [None]
